FAERS Safety Report 8984853 (Version 1)
Quarter: 2012Q4

REPORT INFORMATION
  Report Type: Report from Study
  Country: CA (occurrence: CA)
  Receive Date: 20121225
  Receipt Date: 20121225
  Transmission Date: 20130627
  Serious: Yes (Hospitalization)
  Sender: FDA-Public Use
  Company Number: CA-JNJFOC-20121208105

PATIENT
  Age: 30 Year
  Sex: Female

DRUGS (7)
  1. REMICADE [Suspect]
     Indication: ARTHRITIS
     Dosage: Q5-6 weeks (illegible)
     Route: 042
  2. REMICADE [Suspect]
     Indication: PSORIASIS
     Dosage: Q5-6 weeks (illegible)
     Route: 042
  3. PREDNISONE [Concomitant]
     Dosage: for 5 days
     Route: 065
  4. PREDNISONE [Concomitant]
     Dosage: for 5 days
     Route: 065
  5. EPIPEN [Concomitant]
     Dosage: 2 (units unspecified)
     Route: 065
  6. REACTINE [Concomitant]
     Dosage: for 2 weeks
     Route: 065
  7. ZANTAC [Concomitant]
     Dosage: dose 300 (units unspecified) once in a day for 2 weeks
     Route: 065

REACTIONS (1)
  - Food allergy [Recovering/Resolving]
